FAERS Safety Report 25160154 (Version 4)
Quarter: 2025Q4

REPORT INFORMATION
  Report Type: Spontaneous
  Country: CA (occurrence: CA)
  Receive Date: 20250404
  Receipt Date: 20251020
  Transmission Date: 20260118
  Serious: Yes (Hospitalization, Other)
  Sender: CELLTRION
  Company Number: CA-PFIZER INC-202500066776

PATIENT

DRUGS (12)
  1. INFLIXIMAB [Suspect]
     Active Substance: INFLIXIMAB
     Indication: Crohn^s disease
     Dosage: 1400 MILLIGRAM
     Route: 042
  2. INFLIXIMAB [Suspect]
     Active Substance: INFLIXIMAB
     Dosage: 1400 MILLIGRAM
     Route: 042
  3. INFLECTRA [Suspect]
     Active Substance: INFLIXIMAB-DYYB
     Indication: Crohn^s disease
     Dosage: 1400 MG EVERY 4 WEEKS
     Route: 042
     Dates: start: 20250224
  4. INFLECTRA [Suspect]
     Active Substance: INFLIXIMAB-DYYB
     Dosage: 1400 MG, AFTER 8 WEEKS (1400 MG EVERY 4 WEEKS) SUPPOSED TO RECEIVE TREATMENT AFTER 4 WEEKS
     Route: 042
     Dates: start: 20250421
  5. APIXABAN [Concomitant]
     Active Substance: APIXABAN
     Dosage: 1 DF (2.5 MG) / 1 DOSAGE FORM
  6. CHOLESTYRAMINE [Concomitant]
     Active Substance: CHOLESTYRAMINE
     Dosage: 4 MILLIGRAM
     Route: 048
  7. IRON [Concomitant]
     Active Substance: IRON
     Dosage: UNK (INFUSIONS)
  8. LOPERAMIDE HYDROCHLORIDE [Concomitant]
     Active Substance: LOPERAMIDE HYDROCHLORIDE
     Dosage: 1 DF (2.5 MG)/ 1 DOSAGE FORM
     Route: 048
  9. METOPROLOL [Concomitant]
     Active Substance: METOPROLOL
     Dosage: 25 MILLIGRAM
  10. OMEPRAZOLE [Concomitant]
     Active Substance: OMEPRAZOLE
     Dosage: 20 MILLIGRAM
     Route: 048
  11. VITAMIN B12 [Concomitant]
     Active Substance: CYANOCOBALAMIN
     Dosage: UNK
  12. VIT D [VITAMIN D NOS] [Concomitant]
     Dosage: UNK

REACTIONS (4)
  - Cataract [Not Recovered/Not Resolved]
  - Cholecystitis [Not Recovered/Not Resolved]
  - Off label use [Not Recovered/Not Resolved]
  - Overdose [Unknown]

NARRATIVE: CASE EVENT DATE: 20250421
